FAERS Safety Report 7675809-1 (Version None)
Quarter: 2011Q3

REPORT INFORMATION
  Report Type: 
  Country: None (occurrence: None)
  Receive Date: 20110810
  Receipt Date: 20110801
  Transmission Date: 20111222
  Serious: Yes (Hospitalization, Disabling, Other)
  Sender: FDA-Public Use
  Company Number: US-ASTRAZENECA-2011SE16351

PATIENT
  Age: 53 Year
  Sex: Male
  Weight: 57.6 kg

DRUGS (2)
  1. KEPPRA [Concomitant]
  2. NEXIUM [Suspect]
     Route: 048

REACTIONS (7)
  - CORONARY ARTERY BYPASS [None]
  - SYNCOPE [None]
  - CARDIAC DISORDER [None]
  - CORONARY ARTERY DISEASE [None]
  - TYPE 2 DIABETES MELLITUS [None]
  - CONVULSION [None]
  - ANXIETY [None]
